FAERS Safety Report 9413298 (Version 1)
Quarter: 2013Q3

REPORT INFORMATION
  Report Type: Spontaneous
  Country: CN (occurrence: None)
  Receive Date: 20130718
  Receipt Date: 20130718
  Transmission Date: 20140515
  Serious: Yes (Death)
  Sender: FDA-Public Use
  Company Number: SYM-2013-05985

PATIENT
  Sex: 0

DRUGS (6)
  1. FLUOROURACIL (FLUOROURACIL) (FLUOROURACIL) [Suspect]
     Indication: NASOPHARYNGEAL CANCER
  2. CISPLATIN [Suspect]
     Indication: NASOPHARYNGEAL CANCER
  3. I.V. SOLUTIONS (I.V. SOLUTIONS) [Concomitant]
  4. ANTIEMETICS AND ANTINAUSEANTS (ANTIEMETICS AND ANTINAUSEANTS) [Concomitant]
  5. ANTINEOPLASTIC AGENTS (ANTINEOPLASTIC AGENTS)(CAOSULE) [Concomitant]
  6. THERAPEUTIC RADIOPHARMACEUTICALS (THERAPEUTIC RADIOPHARMACEUTICALS) [Concomitant]

REACTIONS (2)
  - Neutropenia [None]
  - Infection [None]
